FAERS Safety Report 9099544 (Version 2)
Quarter: 2013Q1

REPORT INFORMATION
  Report Type: Spontaneous
  Country: US (occurrence: US)
  Receive Date: 20130214
  Receipt Date: 20130319
  Transmission Date: 20140127
  Serious: No
  Sender: FDA-Public Use
  Company Number: US-PFIZER INC-2013059218

PATIENT
  Age: 65 Year
  Sex: Male
  Weight: 88.44 kg

DRUGS (16)
  1. EFFEXOR XR [Suspect]
     Indication: DEPRESSION
     Dosage: 150 MG, 1X/DAY
     Dates: end: 201301
  2. EFFEXOR XR [Suspect]
     Indication: BIPOLAR DISORDER
  3. EFFEXOR XR [Suspect]
     Indication: ATTENTION DEFICIT/HYPERACTIVITY DISORDER
  4. EFFEXOR XR [Suspect]
     Indication: TEMPOROMANDIBULAR JOINT SYNDROME
  5. LAMICTAL [Concomitant]
     Indication: DEPRESSION
     Dosage: 100 MG, 2X/DAY
  6. LAMICTAL [Concomitant]
     Indication: BIPOLAR DISORDER
  7. LAMICTAL [Concomitant]
     Indication: ATTENTION DEFICIT/HYPERACTIVITY DISORDER
  8. LAMICTAL [Concomitant]
     Indication: TEMPOROMANDIBULAR JOINT SYNDROME
  9. VYVANSE [Concomitant]
     Indication: DEPRESSION
     Dosage: 30 MG, 1X/DAY
  10. VYVANSE [Concomitant]
     Indication: BIPOLAR DISORDER
  11. VYVANSE [Concomitant]
     Indication: ATTENTION DEFICIT/HYPERACTIVITY DISORDER
  12. VYVANSE [Concomitant]
     Indication: TEMPOROMANDIBULAR JOINT SYNDROME
  13. CLONAZEPAM [Concomitant]
     Indication: DEPRESSION
     Dosage: 0.5 MG, 2X/DAY
  14. CLONAZEPAM [Concomitant]
     Indication: BIPOLAR DISORDER
  15. CLONAZEPAM [Concomitant]
     Indication: ATTENTION DEFICIT/HYPERACTIVITY DISORDER
  16. CLONAZEPAM [Concomitant]
     Indication: TEMPOROMANDIBULAR JOINT SYNDROME

REACTIONS (2)
  - Drug withdrawal syndrome [Unknown]
  - Off label use [Unknown]
